FAERS Safety Report 16718920 (Version 1)
Quarter: 2019Q3

REPORT INFORMATION
  Report Type: Spontaneous
  Country: FR (occurrence: FR)
  Receive Date: 20190820
  Receipt Date: 20190820
  Transmission Date: 20191005
  Serious: Yes (Hospitalization)
  Sender: FDA-Public Use
  Company Number: FR-TEVA-2019-FR-1093200

PATIENT
  Age: 86 Year
  Sex: Male
  Weight: 45 kg

DRUGS (10)
  1. INSPRA [Concomitant]
     Active Substance: EPLERENONE
     Dosage: 1 DOSAGE FORM
     Route: 048
     Dates: end: 20190701
  2. LANSOPRAZOLE. [Suspect]
     Active Substance: LANSOPRAZOLE
     Dosage: 1 DOSAGE FORM
     Route: 048
     Dates: start: 20190701, end: 20190715
  3. BISOPROLOL (FUMARATE DE) [Suspect]
     Active Substance: BISOPROLOL FUMARATE
     Dosage: 1.25 MG
     Route: 048
  4. ATORVASTATIN [Suspect]
     Active Substance: ATORVASTATIN
     Dosage: 10 MG
     Route: 048
  5. COLCHICINE. [Suspect]
     Active Substance: COLCHICINE
     Route: 048
     Dates: start: 20190626, end: 20190630
  6. ASPEGIC ADULTES 1000 MG, POUDRE POUR SOLUTION BUVABLE EN SACHET-DOSE [Suspect]
     Active Substance: ASPIRIN DL-LYSINE
     Indication: CARDIAC FAILURE
     Dosage: 2 DOSAGE FORM
     Route: 048
     Dates: start: 20190626, end: 20190630
  7. COLCHICINE. [Suspect]
     Active Substance: COLCHICINE
     Indication: CARDIAC FAILURE
     Dosage: 1 MG
     Route: 048
     Dates: start: 20190705, end: 20190711
  8. ASPEGIC ADULTES 1000 MG, POUDRE POUR SOLUTION BUVABLE EN SACHET-DOSE [Suspect]
     Active Substance: ASPIRIN DL-LYSINE
     Dosage: 3 DOSAGE FORM
     Route: 048
     Dates: start: 20190701
  9. ENTRESTO [Concomitant]
     Active Substance: SACUBITRIL\VALSARTAN
     Dosage: 2 DOSAGE FORM
     Route: 048
     Dates: end: 20190701
  10. INEXIUM 20 MG, COMPRIME GASTRO-RESISTANT [Concomitant]
     Active Substance: ESOMEPRAZOLE
     Dosage: 1 DOSAGE FORM
     Route: 048
     Dates: end: 20190630

REACTIONS (1)
  - Thrombocytopenia [Recovering/Resolving]

NARRATIVE: CASE EVENT DATE: 20190630
